FAERS Safety Report 17061494 (Version 1)
Quarter: 2019Q4

REPORT INFORMATION
  Report Type: Spontaneous
  Country: IN (occurrence: IN)
  Receive Date: 20191121
  Receipt Date: 20191121
  Transmission Date: 20200122
  Serious: Yes (Hospitalization, Other)
  Sender: FDA-Public Use
  Company Number: IN-BAUSCH-BL-2019-061496

PATIENT
  Age: 45 Year
  Sex: Female

DRUGS (7)
  1. SEROFLO [Concomitant]
     Active Substance: FLUTICASONE PROPIONATE\SALMETEROL XINAFOATE
     Indication: CHRONIC OBSTRUCTIVE PULMONARY DISEASE
     Route: 055
  2. LEVOCETIRIZINE, MONTELUKAST [Concomitant]
     Indication: NASOPHARYNGITIS
  3. LEVOCETIRIZINE, MONTELUKAST [Concomitant]
     Indication: COUGH
  4. SALBUTAMOL [Suspect]
     Active Substance: ALBUTEROL
     Indication: CHRONIC OBSTRUCTIVE PULMONARY DISEASE
     Dosage: NEBULISER
     Route: 055
  5. OXYGEN. [Concomitant]
     Active Substance: OXYGEN
     Indication: HYPOXIA
     Route: 045
  6. AMINOPHYLLINE. [Interacting]
     Active Substance: AMINOPHYLLINE
     Indication: CHRONIC OBSTRUCTIVE PULMONARY DISEASE
     Dosage: INFUSION
     Route: 065
  7. DEXAMETHASONE. [Concomitant]
     Active Substance: DEXAMETHASONE
     Indication: CHRONIC OBSTRUCTIVE PULMONARY DISEASE

REACTIONS (2)
  - Drug interaction [Recovered/Resolved]
  - Tachycardia [Recovered/Resolved]
